FAERS Safety Report 16657641 (Version 6)
Quarter: 2025Q1

REPORT INFORMATION
  Report Type: Spontaneous
  Country: US (occurrence: US)
  Receive Date: 20190801
  Receipt Date: 20250227
  Transmission Date: 20250408
  Serious: Yes (Other)
  Sender: GILEAD
  Company Number: US-GILEAD-2019-0420456

PATIENT
  Age: 41 Year
  Sex: Female

DRUGS (2)
  1. STRIBILD [Suspect]
     Active Substance: COBICISTAT\ELVITEGRAVIR\EMTRICITABINE\TENOFOVIR DISOPROXIL FUMARATE
     Indication: HIV infection
     Route: 048
     Dates: start: 201505, end: 20160527
  2. GENVOYA [Concomitant]
     Active Substance: COBICISTAT\ELVITEGRAVIR\EMTRICITABINE\TENOFOVIR ALAFENAMIDE FUMARATE
     Route: 048

REACTIONS (9)
  - Multiple fractures [Not Recovered/Not Resolved]
  - Bone density decreased [Not Recovered/Not Resolved]
  - Tooth loss [Not Recovered/Not Resolved]
  - Pain [Not Recovered/Not Resolved]
  - Emotional distress [Not Recovered/Not Resolved]
  - Anxiety [Unknown]
  - Anhedonia [Unknown]
  - Economic problem [Not Recovered/Not Resolved]
  - Bone density abnormal [Not Recovered/Not Resolved]

NARRATIVE: CASE EVENT DATE: 20180901
